FAERS Safety Report 16108604 (Version 1)
Quarter: 2019Q1

REPORT INFORMATION
  Report Type: Report from Study
  Country: ES (occurrence: ES)
  Receive Date: 20190323
  Receipt Date: 20190323
  Transmission Date: 20190418
  Serious: Yes (Hospitalization, Other)
  Sender: FDA-Public Use
  Company Number: ES-ACCORD-114341

PATIENT
  Age: 4 Year
  Sex: Female
  Weight: 4 kg

DRUGS (6)
  1. ZOVIRAX [Concomitant]
     Active Substance: ACYCLOVIR
     Indication: OPPORTUNISTIC INFECTION PROPHYLAXIS
     Dosage: STRENGTH:400 MG / 5 ML
     Route: 048
     Dates: start: 20170523
  2. HYDROCORTISONE. [Concomitant]
     Active Substance: HYDROCORTISONE
     Indication: ADRENAL INSUFFICIENCY
     Route: 048
     Dates: start: 20171124, end: 20180208
  3. MERCAPTOPURINE/MERCAPTOPURINE ANHYDROUS [Interacting]
     Active Substance: MERCAPTOPURINE
     Indication: ACUTE LYMPHOCYTIC LEUKAEMIA
     Dosage: ALSO TAKEN FROM 30-MAY-2018 TO 06-JUN-2018,50 MG FROM 06-JUN-2018 TO 20-JUN-2018
     Route: 048
     Dates: start: 20180131, end: 20180214
  4. PEDIATRIC SEPTRIN [Concomitant]
     Indication: OPPORTUNISTIC INFECTION PROPHYLAXIS
     Route: 048
     Dates: start: 20170523
  5. ONCASPAR [Interacting]
     Active Substance: PEGASPARGASE
     Indication: ACUTE LYMPHOCYTIC LEUKAEMIA
     Dosage: ALSO TAKEN ON 30-MAY-2018
     Route: 030
     Dates: start: 20180131, end: 20180131
  6. METHOTREXATE. [Suspect]
     Active Substance: METHOTREXATE
     Indication: ACUTE LYMPHOCYTIC LEUKAEMIA
     Dosage: ALSO TAKEN 17.5MG FROM 16-MAY-2018 TO 20-JUN-2018
     Route: 048
     Dates: start: 20180131, end: 20180214

REACTIONS (4)
  - Anaemia [Recovered/Resolved]
  - Respiratory tract infection viral [Recovered/Resolved]
  - Thrombocytopenia [Recovered/Resolved]
  - Drug interaction [Unknown]

NARRATIVE: CASE EVENT DATE: 20180214
